FAERS Safety Report 10204091 (Version 1)
Quarter: 2014Q2

REPORT INFORMATION
  Report Type: Spontaneous
  Country: GB (occurrence: GB)
  Receive Date: 20140529
  Receipt Date: 20140529
  Transmission Date: 20141212
  Serious: Yes (Other)
  Sender: FDA-Public Use
  Company Number: GB-ASTRAZENECA-2014SE35330

PATIENT
  Age: 72 Year
  Sex: Female

DRUGS (5)
  1. BRILIQUE [Suspect]
     Indication: STENT PLACEMENT
     Route: 048
  2. LEVEMIR [Concomitant]
  3. NOVORAPID [Concomitant]
  4. OMEPRAZOLE [Concomitant]
  5. TRAMADOL [Concomitant]

REACTIONS (4)
  - Skin burning sensation [Recovered/Resolved]
  - Erythema [Recovered/Resolved]
  - Dyspnoea [Recovered/Resolved]
  - Rash [Recovered/Resolved]
